FAERS Safety Report 4314578-X (Version None)
Quarter: 2004Q1

REPORT INFORMATION
  Report Type: 
  Country: None (occurrence: None)
  Receive Date: 20040308
  Receipt Date: 20040225
  Transmission Date: 20041129
  Serious: No
  Sender: FDA-Public Use
  Company Number: 2004PK00404

PATIENT
  Age: 52 Year
  Sex: Female
  Weight: 70 kg

DRUGS (5)
  1. NAROPIN [Suspect]
     Indication: CARPAL TUNNEL DECOMPRESSION
     Dosage: 30 MG DAILY RNB
     Dates: start: 20040216
  2. NAROPIN [Suspect]
     Indication: LOCAL ANAESTHESIA
     Dosage: 30 MG DAILY RNB
     Dates: start: 20040216
  3. XYLONEST [Suspect]
     Indication: CARPAL TUNNEL DECOMPRESSION
     Dosage: 30 ML DAILY RNB
     Dates: start: 20040216
  4. XYLONEST [Suspect]
     Indication: LOCAL ANAESTHESIA
     Dosage: 30 ML DAILY RNB
     Dates: start: 20040216
  5. DIAZEPAM [Concomitant]

REACTIONS (4)
  - FEAR [None]
  - HALLUCINATION [None]
  - HYSTERICAL PSYCHOSIS [None]
  - MEDICATION ERROR [None]
